FAERS Safety Report 15903451 (Version 1)
Quarter: 2019Q1

REPORT INFORMATION
  Report Type: Spontaneous
  Country: US (occurrence: US)
  Receive Date: 20190203
  Receipt Date: 20190203
  Transmission Date: 20190417
  Serious: Yes (Other)
  Sender: FDA-Public Use
  Company Number: US-DRREDDYS-USA/USA/18/0105873

PATIENT
  Age: 63 Year
  Sex: Male

DRUGS (5)
  1. ZOLEDRONIC ACID [Concomitant]
     Active Substance: ZOLEDRONIC ACID
     Indication: PRODUCT USED FOR UNKNOWN INDICATION
     Dosage: 4 MG AT A TIME WAS ADMINISTERED EVERY 21 DAYS
  2. AVASTIN [Suspect]
     Active Substance: BEVACIZUMAB
     Indication: ADENOSQUAMOUS CELL LUNG CANCER STAGE IV
  3. PEMETREXED. [Suspect]
     Active Substance: PEMETREXED
     Indication: ADENOSQUAMOUS CELL LUNG CANCER STAGE IV
     Dates: start: 2016
  4. GEMCITABINE [Suspect]
     Active Substance: GEMCITABINE\GEMCITABINE HYDROCHLORIDE
     Indication: ADENOSQUAMOUS CELL LUNG CANCER STAGE IV
     Dosage: DAY 1 AND DAY 8
     Dates: start: 2016
  5. CISPLATIN. [Suspect]
     Active Substance: CISPLATIN
     Indication: ADENOSQUAMOUS CELL LUNG CANCER STAGE IV
     Dates: start: 2016

REACTIONS (2)
  - Fatigue [Recovered/Resolved]
  - Thrombocytopenia [Recovered/Resolved]
